FAERS Safety Report 17818096 (Version 3)
Quarter: 2020Q3

REPORT INFORMATION
  Report Type: Spontaneous
  Country: CA (occurrence: CA)
  Receive Date: 20200522
  Receipt Date: 20200701
  Transmission Date: 20201102
  Serious: Yes (Other)
  Sender: FDA-Public Use
  Company Number: CA-TEVA-2020-CA-1238010

PATIENT
  Sex: Male

DRUGS (2)
  1. PREDNISONE. [Suspect]
     Active Substance: PREDNISONE
     Indication: PROPHYLAXIS AGAINST TRANSPLANT REJECTION
     Route: 065
  2. MYCOPHENOLATE TEVA [Suspect]
     Active Substance: MYCOPHENOLATE MOFETIL
     Indication: PROPHYLAXIS AGAINST TRANSPLANT REJECTION
     Dosage: 2000 MILLIGRAM DAILY; 4 CAPSULES IN THE MORNING AND 4 CAPSULES IN THE EVENING
     Route: 048
     Dates: start: 2019

REACTIONS (10)
  - White blood cell count decreased [Recovered/Resolved]
  - Therapy change [Unknown]
  - Abdominal discomfort [Recovered/Resolved]
  - Haematochezia [Recovered/Resolved]
  - Neutropenia [Recovered/Resolved]
  - Full blood count decreased [Recovered/Resolved]
  - Stress [Recovered/Resolved]
  - Neutrophil count decreased [Recovered/Resolved]
  - Product formulation issue [Recovered/Resolved]
  - Nightmare [Recovered/Resolved]

NARRATIVE: CASE EVENT DATE: 202003
